FAERS Safety Report 13384933 (Version 2)
Quarter: 2017Q2

REPORT INFORMATION
  Report Type: Spontaneous
  Country: US (occurrence: US)
  Receive Date: 20170329
  Receipt Date: 20170423
  Transmission Date: 20170830
  Serious: Yes (Other)
  Sender: FDA-Public Use
  Company Number: US-009507513-1703USA012583

PATIENT
  Age: 62 Year
  Sex: Female

DRUGS (7)
  1. KEYTRUDA [Suspect]
     Active Substance: PEMBROLIZUMAB
     Indication: MELANOMA RECURRENT
     Dosage: 2 MG/KG, INTRAVENOUSLY EVERY 3 WEEKS
     Route: 042
     Dates: start: 20170207, end: 2017
  2. ATENOLOL. [Concomitant]
     Active Substance: ATENOLOL
  3. PEPCID [Concomitant]
     Active Substance: FAMOTIDINE
  4. HYDROCHLOROTHIAZIDE. [Concomitant]
     Active Substance: HYDROCHLOROTHIAZIDE
  5. QUINAPRIL HYDROCHLORIDE. [Concomitant]
     Active Substance: QUINAPRIL HYDROCHLORIDE
  6. VITAMINS (UNSPECIFIED) [Concomitant]
     Active Substance: VITAMINS
  7. PROCHLORPERAZINE. [Concomitant]
     Active Substance: PROCHLORPERAZINE

REACTIONS (2)
  - Visual acuity reduced [Not Recovered/Not Resolved]
  - Subretinal fluid [Not Recovered/Not Resolved]

NARRATIVE: CASE EVENT DATE: 20170327
